FAERS Safety Report 8877014 (Version 1)
Quarter: 2012Q4

REPORT INFORMATION
  Report Type: Report from Study
  Country: DE (occurrence: JP)
  Receive Date: 20121030
  Receipt Date: 20121030
  Transmission Date: 20130627
  Serious: Yes (Other)
  Sender: FDA-Public Use
  Company Number: JP-BRISTOL-MYERS SQUIBB COMPANY-17054610

PATIENT
  Age: 72 Year
  Sex: Male
  Weight: 67 kg

DRUGS (5)
  1. ERBITUX SOLN FOR INF 5MG/ML [Suspect]
     Indication: COLON CANCER
     Dosage: 250mg/m2 a week on 28Aug2009 Most recent dose: 09Feb10
     Route: 041
     Dates: start: 20090821
  2. IRINOTECAN [Concomitant]
     Indication: COLON CANCER
     Dosage: 28Aug2009 skipped dose 80 mg 1 in 1wk
     Route: 041
     Dates: start: 20090821
  3. RESTAMIN [Concomitant]
     Indication: PREMEDICATION
     Dosage: 1DF: 5DF 1 in wk
     Route: 048
     Dates: start: 20090821
  4. DECADRON [Concomitant]
     Indication: PREMEDICATION
     Route: 042
     Dates: start: 20090821
  5. GRANISETRON [Concomitant]
     Indication: PROPHYLAXIS OF NAUSEA AND VOMITING
     Route: 065
     Dates: start: 20090821, end: 20091204

REACTIONS (5)
  - Duodenal ulcer haemorrhage [Recovered/Resolved]
  - Acne [Not Recovered/Not Resolved]
  - Hypomagnesaemia [Not Recovered/Not Resolved]
  - Paronychia [Not Recovered/Not Resolved]
  - Rash [Not Recovered/Not Resolved]
